FAERS Safety Report 8585129-9 (Version None)
Quarter: 2012Q3

REPORT INFORMATION
  Report Type: 
  Country: None (occurrence: None)
  Receive Date: 20120810
  Receipt Date: 20120730
  Transmission Date: 20120928
  Serious: Yes (Hospitalization, Other)
  Sender: FDA-Public Use
  Company Number: DE-GENZYME-THYM-1003318

PATIENT
  Sex: Female
  Weight: 75 kg

DRUGS (7)
  1. SOLU-DACORTIN [Concomitant]
     Indication: TRANSPLANT
     Dosage: 250 MG, BID
     Route: 065
     Dates: start: 20120614, end: 20120614
  2. AMLODIPINE [Concomitant]
     Indication: HYPERTENSION
     Dosage: 10 MG, QD
     Route: 065
  3. PROGRAF [Concomitant]
     Indication: TRANSPLANT
     Dosage: 7 MG, BID
     Route: 065
     Dates: start: 20120616
  4. SIMVA [Concomitant]
     Indication: CORONARY ARTERY DISEASE
     Dosage: 20 MG, QD
     Route: 065
  5. SOLU-DACORTIN [Concomitant]
     Dosage: 250 MG, UNK
     Route: 065
     Dates: start: 20120601, end: 20120601
  6. MYCOPHENOLATE MOFETIL [Concomitant]
     Indication: TRANSPLANT
     Dosage: 1 MG, BID
     Route: 065
     Dates: start: 20120615
  7. THYMOGLOBULIN [Suspect]
     Indication: RENAL TRANSPLANT
     Dosage: 1.5 MG/KG, ONCE
     Route: 065
     Dates: start: 20120614, end: 20120614

REACTIONS (10)
  - HAEMORRHAGE SUBCUTANEOUS [None]
  - DIABETES MELLITUS [None]
  - CARDIOVASCULAR DISORDER [None]
  - BLOOD GLUCOSE INCREASED [None]
  - URINARY TRACT INFECTION [None]
  - CHILLS [None]
  - HEPARIN-INDUCED THROMBOCYTOPENIA [None]
  - HAEMATURIA [None]
  - TRANSPLANT REJECTION [None]
  - SUBCUTANEOUS HAEMATOMA [None]
